FAERS Safety Report 15526867 (Version 2)
Quarter: 2022Q1

REPORT INFORMATION
  Report Type: Spontaneous
  Country: FR (occurrence: None)
  Receive Date: 20181018
  Receipt Date: 20220127
  Transmission Date: 20220423
  Serious: Yes (Other)
  Sender: FDA-Public Use
  Company Number: None

PATIENT
  Age: 66 Year
  Sex: Female
  Weight: 72 kg

DRUGS (5)
  1. ROPIVACAINE HYDROCHLORIDE [Suspect]
     Active Substance: ROPIVACAINE HYDROCHLORIDE
     Indication: Anaesthesia
     Dosage: 20 ML, 1 DOSAGE TOTAL
     Route: 030
     Dates: start: 20180910, end: 20180910
  2. CISATRACURIUM BESYLATE [Suspect]
     Active Substance: CISATRACURIUM BESYLATE
     Indication: Anaesthesia
     Dosage: 8 MG, 1 DOSAGE TOTAL
     Route: 042
     Dates: start: 20180910, end: 20180910
  3. EPHEDRINE [Suspect]
     Active Substance: EPHEDRINE
     Indication: Procedural hypotension
     Dosage: 6 MG, UNK
     Route: 042
     Dates: start: 20180910, end: 20180910
  4. PROPOFOL [Suspect]
     Active Substance: PROPOFOL
     Indication: Anaesthesia
     Dosage: 200 MG, 1 DOSAGE TOTAL
     Route: 042
     Dates: start: 20180910, end: 20180910
  5. REMIFENTANIL HYDROCHLORIDE [Suspect]
     Active Substance: REMIFENTANIL HYDROCHLORIDE
     Indication: Pain
     Dosage: 8.5 NG/ML, 1 DOSAGE TOTAL
     Route: 042
     Dates: start: 20180910, end: 20180910

REACTIONS (1)
  - Anaphylactic reaction [Recovered/Resolved]

NARRATIVE: CASE EVENT DATE: 20180910
